FAERS Safety Report 5001553-5 (Version None)
Quarter: 2006Q2

REPORT INFORMATION
  Report Type: 
  Country: None (occurrence: None)
  Receive Date: 20060515
  Receipt Date: 20060505
  Transmission Date: 20061013
  Serious: Yes (Disabling)
  Sender: FDA-Public Use
  Company Number: US-KINGPHARMUSA00001-K200600576

PATIENT
  Age: 83 Year
  Sex: Male

DRUGS (9)
  1. ALTACE [Suspect]
     Indication: CARDIAC FAILURE CONGESTIVE
     Dosage: 2.5 MG, QD
     Route: 048
     Dates: start: 20060217
  2. ALTACE [Suspect]
     Indication: HYPERTENSION
     Dosage: 2.5 MG, QD
     Route: 048
     Dates: start: 20060217
  3. ALTACE [Suspect]
     Dosage: 1.25 MG, QD
     Route: 048
  4. ALTACE [Suspect]
     Dosage: 3.75 MG, QD
     Route: 048
  5. HYPURIN ISOPHANE [Concomitant]
     Indication: DIABETES MELLITUS
  6. ACTRAPID [Concomitant]
     Indication: DIABETES MELLITUS
  7. FUROSEMIDE [Concomitant]
     Indication: CARDIAC FAILURE CONGESTIVE
     Dosage: 40 MG, UNK
     Dates: start: 20060217
  8. FUROSEMIDE [Concomitant]
     Indication: HYPERTENSION
     Dosage: 40 MG, UNK
     Dates: start: 20060217
  9. FINASTERIDE [Concomitant]
     Indication: BENIGN PROSTATIC HYPERPLASIA
     Dosage: 5 MG, UNK
     Dates: start: 19900101

REACTIONS (4)
  - DIABETES MELLITUS INADEQUATE CONTROL [None]
  - DIARRHOEA [None]
  - INCREASED INSULIN REQUIREMENT [None]
  - LETHARGY [None]
